FAERS Safety Report 4353091-0 (Version None)
Quarter: 2004Q2

REPORT INFORMATION
  Report Type: 
  Country: None (occurrence: None)
  Receive Date: 20040429
  Receipt Date: 20040426
  Transmission Date: 20050107
  Serious: Yes (Death)
  Sender: FDA-Public Use
  Company Number: 2003184550GB

PATIENT
  Age: 60 Year
  Sex: Male
  Weight: 70.9 kg

DRUGS (4)
  1. GENOTROPIN [Suspect]
     Indication: HYPOPITUITARISM
     Dosage: 0.6 MG, QD, UNK
     Route: 065
     Dates: start: 20011122, end: 20030815
  2. THYROXIN (LEVOTHYROXINE SODIUM) [Concomitant]
  3. SUSTANON (TESTOSTERONE PROPIONATE, TESTOSTERONE PHENYLPROPIONATE, TEST [Concomitant]
  4. HYDROCORTISONE [Concomitant]

REACTIONS (3)
  - METASTASES TO LIVER [None]
  - METASTASES TO LUNG [None]
  - PANCREATIC CARCINOMA [None]
